FAERS Safety Report 5988463-1 (Version None)
Quarter: 2008Q4

REPORT INFORMATION
  Report Type: 
  Country: None (occurrence: None)
  Receive Date: 20081210
  Receipt Date: 20081202
  Transmission Date: 20090506
  Serious: Yes (Hospitalization)
  Sender: FDA-Public Use
  Company Number: DK-ASTRAZENECA-2008SE05588

PATIENT
  Age: 30 Year
  Sex: Female

DRUGS (1)
  1. SEROQUEL [Suspect]
     Dosage: 100 MG IN MORNING AND 400 MG AT NIGHT.
     Route: 048
     Dates: start: 20070101

REACTIONS (14)
  - AGGRESSION [None]
  - ALOPECIA [None]
  - ANXIETY [None]
  - APATHY [None]
  - DELUSION [None]
  - DIZZINESS [None]
  - FOOD CRAVING [None]
  - HYPERSOMNIA [None]
  - INCREASED APPETITE [None]
  - MENTAL IMPAIRMENT [None]
  - MOOD SWINGS [None]
  - NAUSEA [None]
  - OEDEMA PERIPHERAL [None]
  - PSYCHOTIC DISORDER [None]
